FAERS Safety Report 5899100-9 (Version None)
Quarter: 2008Q3

REPORT INFORMATION
  Report Type: 
  Country: None (occurrence: None)
  Receive Date: 20080925
  Receipt Date: 20080915
  Transmission Date: 20090109
  Serious: Yes (Other)
  Sender: FDA-Public Use
  Company Number: US-ELI_LILLY_AND_COMPANY-US200809003243

PATIENT
  Sex: Female

DRUGS (4)
  1. CYMBALTA [Suspect]
     Indication: DEPRESSION
     Dosage: 20 MG, DAILY (1/D)
  2. CYMBALTA [Suspect]
     Dosage: 10 MG, DAILY (1/D)
     Dates: start: 20080101, end: 20080101
  3. CYMBALTA [Suspect]
     Dosage: 60 MG, DAILY (1/D)
  4. BUPROPION HCL [Concomitant]
     Dates: start: 20080101

REACTIONS (3)
  - DRUG INEFFECTIVE [None]
  - FEELING ABNORMAL [None]
  - SURGERY [None]
